FAERS Safety Report 5750598-6 (Version None)
Quarter: 2008Q2

REPORT INFORMATION
  Report Type: 
  Country: None (occurrence: None)
  Receive Date: 20080528
  Receipt Date: 20080523
  Transmission Date: 20081010
  Serious: Yes (Hospitalization)
  Sender: FDA-Public Use
  Company Number: US-BRISTOL-MYERS SQUIBB COMPANY-14198725

PATIENT
  Age: 66 Year
  Sex: Male
  Weight: 70 kg

DRUGS (3)
  1. CETUXIMAB [Suspect]
     Indication: LARYNGEAL CANCER
     Dosage: START DATE OF FIRST COURSE: 15-APR-2008.
     Dates: start: 20080513, end: 20080513
  2. CISPLATIN [Suspect]
     Indication: LARYNGEAL CANCER
     Dosage: START DATE OF FIRST COURSE: 15-APR-2008.
     Dates: start: 20080513, end: 20080513
  3. RADIATION THERAPY [Suspect]
     Indication: LARYNGEAL CANCER
     Dosage: 1 DOSAGE FORM= 42GY. NUMBER OF FRACTIONS-21 OVER 27 DAYS.
     Dates: start: 20080516

REACTIONS (3)
  - DEHYDRATION [None]
  - ORAL PAIN [None]
  - PAIN OF SKIN [None]
